FAERS Safety Report 8779013 (Version 1)
Quarter: 2012Q4

REPORT INFORMATION
  Report Type: 
  Country: BR (occurrence: BR)
  Receive Date: 20120912
  Receipt Date: 20120912
  Transmission Date: 20130627
  Serious: Yes (Other)
  Sender: FDA-Public Use
  Company Number: BR-PFIZER INC-2012220147

PATIENT
  Sex: Female

DRUGS (2)
  1. EFEXOR XR [Suspect]
     Dosage: 75 mg, UNK
     Route: 048
     Dates: start: 201206
  2. EFEXOR XR [Suspect]
     Dosage: 275 mg daily

REACTIONS (1)
  - Vitreous opacities [Unknown]
